FAERS Safety Report 17432131 (Version 1)
Quarter: 2020Q1

REPORT INFORMATION
  Report Type: Spontaneous
  Country: US (occurrence: US)
  Receive Date: 20200218
  Receipt Date: 20200218
  Transmission Date: 20200409
  Serious: No
  Sender: FDA-Public Use
  Company Number: US-CELGENEUS-USA-20200109584

PATIENT
  Sex: Male

DRUGS (3)
  1. REBLOZYL [Suspect]
     Active Substance: LUSPATERCEPT-AAMT
     Route: 058
  2. REBLOZYL [Suspect]
     Active Substance: LUSPATERCEPT-AAMT
     Indication: PRODUCT USED FOR UNKNOWN INDICATION
     Route: 058
  3. LISINOPRIL. [Concomitant]
     Active Substance: LISINOPRIL
     Indication: PRODUCT USED FOR UNKNOWN INDICATION
     Route: 065

REACTIONS (2)
  - Blood pressure decreased [Unknown]
  - Gait disturbance [Unknown]
